FAERS Safety Report 7517068-6 (Version None)
Quarter: 2011Q2

REPORT INFORMATION
  Report Type: 
  Country: None (occurrence: None)
  Receive Date: 20110503
  Receipt Date: 20110114
  Transmission Date: 20111010
  Serious: Yes (Other)
  Sender: FDA-Public Use
  Company Number: KV201100009

PATIENT
  Sex: Male

DRUGS (1)
  1. ISOSORBIDE MONONITRATE [Suspect]
     Indication: PRODUCT USED FOR UNKNOWN INDICATION
     Dosage: ORAL
     Route: 048
     Dates: start: 20080111, end: 20081101

REACTIONS (9)
  - DECREASED INTEREST [None]
  - DISABILITY [None]
  - MYOCARDIAL INFARCTION [None]
  - SHOCK [None]
  - INJURY [None]
  - HAEMORRHAGE [None]
  - ARRHYTHMIA [None]
  - PAIN [None]
  - EMOTIONAL DISTRESS [None]
